FAERS Safety Report 6213798-7 (Version None)
Quarter: 2009Q2

REPORT INFORMATION
  Report Type: 
  Country: None (occurrence: None)
  Receive Date: 20090602
  Receipt Date: 20090519
  Transmission Date: 20091009
  Serious: Yes (Death, Other)
  Sender: FDA-Public Use
  Company Number: 2009EK000053

PATIENT

DRUGS (2)
  1. RETAVASE [Suspect]
     Indication: ISCHAEMIC STROKE
     Dosage: 1 U; X1; IV, 1 U; QH; IV
     Route: 042
  2. HEPARIN [Concomitant]

REACTIONS (1)
  - HAEMORRHAGE INTRACRANIAL [None]
